FAERS Safety Report 16438568 (Version 2)
Quarter: 2019Q3

REPORT INFORMATION
  Report Type: Report from Study
  Country: SE (occurrence: SE)
  Receive Date: 20190617
  Receipt Date: 20190828
  Transmission Date: 20191004
  Serious: Yes (Other)
  Sender: FDA-Public Use
  Company Number: SE-ROCHE-1535165

PATIENT

DRUGS (2)
  1. RITUXIMAB. [Suspect]
     Active Substance: RITUXIMAB
     Indication: B-CELL LYMPHOMA
     Dosage: 8 INFUSIONS OF 375MG/M2 AT DAY 1 OF WEEKS 1, 2, 3, 4, AND REPEATED AT DAY 1 OF WEEKS 12, 13, 14 AND
     Route: 042
  2. LENALIDOMIDE [Suspect]
     Active Substance: LENALIDOMIDE
     Indication: B-CELL LYMPHOMA
     Dosage: 15 MG DAILY, STARTING 14 DAYS BEFORE THE FIRST RITUXIMAB ADMINISTRATION AND CONTINUOUSLY UNTIL 14 DA
     Route: 048

REACTIONS (14)
  - Fatigue [Unknown]
  - Upper respiratory tract infection [Unknown]
  - Neutropenia [Unknown]
  - Febrile neutropenia [Unknown]
  - Nausea [Unknown]
  - Rash [Unknown]
  - Mucosal inflammation [Unknown]
  - Vomiting [Unknown]
  - Device related infection [Unknown]
  - Anaemia [Unknown]
  - Transaminases increased [Unknown]
  - Skin infection [Unknown]
  - Thrombocytopenia [Unknown]
  - Urinary tract infection [Unknown]
